FAERS Safety Report 4425291-2 (Version None)
Quarter: 2004Q3

REPORT INFORMATION
  Report Type: 
  Country: None (occurrence: None)
  Receive Date: 20040812
  Receipt Date: 20040812
  Transmission Date: 20050211
  Serious: No
  Sender: FDA-Public Use
  Company Number: None

PATIENT
  Age: 81 Year
  Sex: Male
  Weight: 67.1324 kg

DRUGS (11)
  1. GATIFLOXACIN [Suspect]
     Indication: SKIN ULCER
     Dosage: 400 MG ORAL
     Route: 048
     Dates: start: 20040429, end: 20040430
  2. ASA` [Concomitant]
  3. DOCUSATE [Concomitant]
  4. FELODIPINE [Concomitant]
  5. GLYBURIDE [Concomitant]
  6. INSULIN [Concomitant]
  7. RANITIDINE [Concomitant]
  8. VITAMIN E [Concomitant]
  9. FOLIC ACID [Concomitant]
  10. GEMFIBROZIL [Concomitant]
  11. HYDROCHLOROTHIAZIDE [Concomitant]

REACTIONS (1)
  - HYPOGLYCAEMIA [None]
